FAERS Safety Report 7489953-5 (Version None)
Quarter: 2011Q2

REPORT INFORMATION
  Report Type: 
  Country: None (occurrence: None)
  Receive Date: 20110519
  Receipt Date: 20110509
  Transmission Date: 20111010
  Serious: Yes (Hospitalization, Other)
  Sender: FDA-Public Use
  Company Number: US-BAYER-200928545NA

PATIENT
  Age: 20 Year
  Sex: Female
  Weight: 97.5 kg

DRUGS (4)
  1. LORTAB [Concomitant]
  2. LORTAB [Concomitant]
     Dosage: UNK UNK, PRN
  3. YAZ [Suspect]
     Indication: PRODUCT USED FOR UNKNOWN INDICATION
     Dosage: UNK
     Dates: start: 20070601, end: 20070731
  4. AMOXICILLIN [Concomitant]
     Dosage: 500 MG, BID

REACTIONS (2)
  - DEEP VEIN THROMBOSIS [None]
  - PULMONARY EMBOLISM [None]
